FAERS Safety Report 9770596 (Version 2)
Quarter: 2013Q4

REPORT INFORMATION
  Report Type: Spontaneous
  Country: CA (occurrence: CA)
  Receive Date: 20131218
  Receipt Date: 20131218
  Transmission Date: 20140711
  Serious: Yes (Hospitalization)
  Sender: FDA-Public Use
  Company Number: CA-GLAXOSMITHKLINE-A1052952A

PATIENT
  Age: 29 Year
  Sex: Female

DRUGS (11)
  1. BUPROPION [Suspect]
     Indication: TOBACCO USER
     Dosage: 300MG FOUR TIMES PER DAY
     Route: 042
  2. WATER [Concomitant]
     Route: 042
  3. RITONAVIR [Concomitant]
  4. ATAZANAVIR [Concomitant]
  5. EMTRICITABINE [Concomitant]
  6. TENOFOVIR [Concomitant]
  7. OLANZAPINE [Concomitant]
     Dosage: 5MG TWICE PER DAY
     Route: 048
  8. LITHIUM [Concomitant]
     Dosage: 600MG PER DAY
     Route: 048
  9. VENLAFAXINE [Concomitant]
     Dosage: 200MG PER DAY
     Route: 048
  10. DIVALPROEX [Concomitant]
     Dosage: 750MG PER DAY
     Route: 048
  11. BUPRENORPHINE/NALOXONE [Concomitant]
     Dosage: 24MG PER DAY
     Route: 048

REACTIONS (10)
  - Drug dependence [Recovered/Resolved]
  - Drug abuse [Unknown]
  - Incorrect route of drug administration [Unknown]
  - Irritability [Unknown]
  - Affect lability [Unknown]
  - Depressed mood [Unknown]
  - Drug withdrawal syndrome [Unknown]
  - Intentional overdose [Unknown]
  - Euphoric mood [Unknown]
  - Feeling abnormal [Unknown]
